FAERS Safety Report 5381386-0 (Version None)
Quarter: 2007Q3

REPORT INFORMATION
  Report Type: 
  Country: None (occurrence: None)
  Receive Date: 20070709
  Receipt Date: 20070628
  Transmission Date: 20080115
  Serious: Yes (Other)
  Sender: FDA-Public Use
  Company Number: US-KINGPHARMUSA00001-K200700821

PATIENT

DRUGS (3)
  1. ALTACE [Suspect]
     Dosage: 7.5 MG, QD
  2. ALTACE [Suspect]
     Dosage: 10 MG, QD
  3. CARDICOR [Concomitant]

REACTIONS (2)
  - CARDIAC ARREST [None]
  - FEELING ABNORMAL [None]
